FAERS Safety Report 4281002-5 (Version None)
Quarter: 2004Q1

REPORT INFORMATION
  Report Type: 
  Country: None (occurrence: None)
  Receive Date: 20040122
  Receipt Date: 20030923
  Transmission Date: 20041129
  Serious: No
  Sender: FDA-Public Use
  Company Number: 2003162994US

PATIENT
  Sex: Male

DRUGS (1)
  1. SOMAVERT [Suspect]

REACTIONS (1)
  - CONTUSION [None]
